FAERS Safety Report 5358674-7 (Version None)
Quarter: 2007Q2

REPORT INFORMATION
  Report Type: 
  Country: None (occurrence: None)
  Receive Date: 20070615
  Receipt Date: 20070614
  Transmission Date: 20071010
  Serious: Yes (Hospitalization)
  Sender: FDA-Public Use
  Company Number: FR-BRISTOL-MYERS SQUIBB COMPANY-13477013

PATIENT
  Age: 56 Year
  Sex: Male

DRUGS (5)
  1. GLUCOPHAGE [Suspect]
     Indication: DIABETES MELLITUS
     Route: 048
     Dates: start: 20060617, end: 20060619
  2. IRBESARTAN [Suspect]
     Route: 048
     Dates: end: 20060619
  3. SANDOGLOBULIN [Suspect]
     Route: 042
     Dates: start: 20060616, end: 20060619
  4. DAONIL [Concomitant]
     Indication: DIABETES MELLITUS
     Route: 048
  5. OMEPRAZOLE [Concomitant]
     Route: 048

REACTIONS (2)
  - LACTIC ACIDOSIS [None]
  - RENAL FAILURE ACUTE [None]
